FAERS Safety Report 5155966-1 (Version None)
Quarter: 2006Q4

REPORT INFORMATION
  Report Type: 
  Country: None (occurrence: None)
  Receive Date: 20061114
  Receipt Date: 20061101
  Transmission Date: 20070319
  Serious: Yes (Other)
  Sender: FDA-Public Use
  Company Number: 2006BI015905

PATIENT
  Sex: Female

DRUGS (3)
  1. AVONEX [Suspect]
     Dosage: IM; SEE IMAGE
     Route: 030
     Dates: start: 20040116, end: 20041108
  2. AVONEX [Suspect]
     Dosage: IM; SEE IMAGE
     Route: 030
     Dates: start: 20051208, end: 20060707
  3. AVONEX [Suspect]
     Dosage: IM; SEE IMAGE
     Route: 030
     Dates: start: 20060901

REACTIONS (1)
  - PULMONARY HYPERTENSION [None]
